FAERS Safety Report 6812891-5 (Version None)
Quarter: 2010Q2

REPORT INFORMATION
  Report Type: 
  Country: None (occurrence: None)
  Receive Date: 20100628
  Receipt Date: 20100617
  Transmission Date: 20101027
  Serious: Yes (Life-Threatening)
  Sender: FDA-Public Use
  Company Number: 2010BN000035

PATIENT
  Age: 48 Year
  Sex: Male

DRUGS (5)
  1. MELPHALAN HYDROCHLORIDE [Suspect]
     Indication: BONE MARROW CONDITIONING REGIMEN
     Dosage: 200 MG/M2;IV
     Route: 042
  2. ACYCLOVIR [Concomitant]
  3. FLUCONAZOLE [Concomitant]
  4. CIPROFLOXACIN [Concomitant]
  5. PREV MEDS [Concomitant]

REACTIONS (7)
  - DIABETES INSIPIDUS [None]
  - FEBRILE NEUTROPENIA [None]
  - HEMIANOPIA [None]
  - PITUITARY HAEMORRHAGE [None]
  - PITUITARY TUMOUR BENIGN [None]
  - THROMBOCYTOPENIA [None]
  - VISION BLURRED [None]
